FAERS Safety Report 9408545 (Version 1)
Quarter: 2013Q3

REPORT INFORMATION
  Report Type: Spontaneous
  Country: US (occurrence: US)
  Receive Date: 20130718
  Receipt Date: 20130718
  Transmission Date: 20140515
  Serious: No
  Sender: FDA-Public Use
  Company Number: US-ASTELLAS-2013US006079

PATIENT
  Sex: Male
  Weight: 120 kg

DRUGS (2)
  1. VESICARE [Suspect]
     Indication: PRODUCT USED FOR UNKNOWN INDICATION
     Dosage: 2-5MG TABLET DAILY
     Route: 048
  2. VESICARE [Suspect]
     Dosage: 10 MG, UID/QD
     Route: 048

REACTIONS (2)
  - Drug ineffective [Unknown]
  - Wrong technique in drug usage process [Unknown]
